FAERS Safety Report 5685741-0 (Version None)
Quarter: 2008Q1

REPORT INFORMATION
  Report Type: 
  Country: None (occurrence: None)
  Receive Date: 20080328
  Receipt Date: 20070921
  Transmission Date: 20080703
  Serious: No
  Sender: FDA-Public Use
  Company Number: US-BAYER-US-2007-036091

PATIENT
  Age: 19 Year
  Sex: Female
  Weight: 57 kg

DRUGS (4)
  1. MIRENA [Suspect]
     Indication: CONTRACEPTION
     Route: 015
     Dates: start: 20070918
  2. ZOLOFT [Concomitant]
  3. WELLBUTRIN [Concomitant]
  4. DOXYCYCLINE [Concomitant]
     Dates: start: 20070918

REACTIONS (4)
  - ABDOMINAL PAIN [None]
  - EPISTAXIS [None]
  - GINGIVAL BLEEDING [None]
  - METRORRHAGIA [None]
